FAERS Safety Report 8790200 (Version 1)
Quarter: 2012Q4

REPORT INFORMATION
  Report Type: 
  Country: US (occurrence: US)
  Receive Date: 20120917
  Receipt Date: 20120917
  Transmission Date: 20130627
  Serious: Yes (Death)
  Sender: FDA-Public Use
  Company Number: US-COVIDIEN/TYCO HEALTHCARE/MALLINCKRODT-T201203406

PATIENT
  Age: 44 Year
  Sex: Female

DRUGS (5)
  1. EXALGO EXTENDED RELEASE [Suspect]
     Dosage: two 16 mg tablets, qd
     Route: 048
     Dates: start: 20120307
  2. OXYCODONE [Concomitant]
     Indication: BREAKTHROUGH PAIN
     Dosage: 30 mg, one every 4 hours, prn
  3. SOMA [Concomitant]
     Dosage: 350 mg, tid
  4. IBUPROFEN [Concomitant]
     Dosage: UNK
     Dates: start: 201109
  5. OPHTHALMIC ANTIBIOTIC DROPS [Concomitant]
     Dosage: UNK
     Route: 047
     Dates: start: 201109

REACTIONS (1)
  - Cardio-respiratory arrest [Fatal]
